FAERS Safety Report 23850259 (Version 1)
Quarter: 2024Q2

REPORT INFORMATION
  Report Type: Spontaneous
  Country: GR (occurrence: GR)
  Receive Date: 20240513
  Receipt Date: 20240513
  Transmission Date: 20240716
  Serious: Yes (Death, Hospitalization)
  Sender: FDA-Public Use
  Company Number: GR-BoehringerIngelheim-2024-BI-027191

PATIENT
  Age: 80 Year
  Sex: Male

DRUGS (1)
  1. JARDIANCE [Suspect]
     Active Substance: EMPAGLIFLOZIN
     Indication: Cardiac failure

REACTIONS (4)
  - Gastric haemorrhage [Fatal]
  - Haematemesis [Unknown]
  - Urinary tract infection [Unknown]
  - Pyuria [Unknown]

NARRATIVE: CASE EVENT DATE: 20240301
